FAERS Safety Report 16525529 (Version 4)
Quarter: 2020Q1

REPORT INFORMATION
  Report Type: Report from Study
  Country: None (occurrence: US)
  Receive Date: 20190702
  Receipt Date: 20200203
  Transmission Date: 20200409
  Serious: Yes (Other)
  Sender: FDA-Public Use
  Company Number: US-ABBVIE-19K-163-2745146-00

PATIENT
  Age: 74 Year
  Sex: Male

DRUGS (10)
  1. WARFARIN [Concomitant]
     Active Substance: WARFARIN
     Indication: PRODUCT USED FOR UNKNOWN INDICATION
     Route: 065
  2. IRON SULFATE [Concomitant]
     Active Substance: FERROUS SULFATE ANHYDROUS
     Indication: PRODUCT USED FOR UNKNOWN INDICATION
  3. ADVAIR HFA [Concomitant]
     Active Substance: FLUTICASONE PROPIONATE\SALMETEROL XINAFOATE
     Indication: PRODUCT USED FOR UNKNOWN INDICATION
     Dosage: INHALER
  4. ROSUVASTATIN. [Concomitant]
     Active Substance: ROSUVASTATIN
     Indication: BLOOD CHOLESTEROL INCREASED
  5. CLARITIN [Concomitant]
     Active Substance: LORATADINE
     Indication: PRODUCT USED FOR UNKNOWN INDICATION
     Dates: start: 20190913
  6. METOPROLOL. [Concomitant]
     Active Substance: METOPROLOL
     Indication: HYPERTENSION
  7. COUMADIN [Concomitant]
     Active Substance: WARFARIN SODIUM
     Indication: PRODUCT USED FOR UNKNOWN INDICATION
     Dates: end: 20190625
  8. VENCLEXTA [Suspect]
     Active Substance: VENETOCLAX
     Indication: CHRONIC LYMPHOCYTIC LEUKAEMIA
     Route: 048
     Dates: start: 20181030
  9. VENCLEXTA [Suspect]
     Active Substance: VENETOCLAX
     Route: 048
     Dates: end: 20190524
  10. VALTREX [Concomitant]
     Active Substance: VALACYCLOVIR HYDROCHLORIDE
     Indication: PRODUCT USED FOR UNKNOWN INDICATION

REACTIONS (32)
  - Protein total decreased [Recovered/Resolved]
  - Discomfort [Unknown]
  - Protein total decreased [Unknown]
  - Productive cough [Not Recovered/Not Resolved]
  - Blood lactate dehydrogenase increased [Not Recovered/Not Resolved]
  - Skin mass [Recovering/Resolving]
  - Neoplasm skin [Recovered/Resolved]
  - International normalised ratio decreased [Recovered/Resolved]
  - Inguinal hernia [Not Recovered/Not Resolved]
  - Blood immunoglobulin G decreased [Unknown]
  - Heart rate decreased [Unknown]
  - Blood glucose increased [Unknown]
  - Acne [Recovering/Resolving]
  - Hernia [Not Recovered/Not Resolved]
  - Hypotension [Unknown]
  - Onychalgia [Unknown]
  - Diarrhoea [Recovering/Resolving]
  - Hyperkeratosis [Recovering/Resolving]
  - Actinic keratosis [Recovering/Resolving]
  - Weight decreased [Not Recovered/Not Resolved]
  - Decreased appetite [Not Recovered/Not Resolved]
  - Protein total decreased [Unknown]
  - Atypical mycobacterium test positive [Not Recovered/Not Resolved]
  - Immunoglobulins decreased [Not Recovered/Not Resolved]
  - Pain [Unknown]
  - International normalised ratio decreased [Unknown]
  - Blood immunoglobulin A decreased [Unknown]
  - Sleep disorder [Not Recovered/Not Resolved]
  - Blood uric acid decreased [Not Recovered/Not Resolved]
  - Urinary tract disorder [Recovering/Resolving]
  - Blood immunoglobulin M decreased [Unknown]
  - Mycobacterium avium complex infection [Unknown]

NARRATIVE: CASE EVENT DATE: 20181030
